FAERS Safety Report 5215024-4 (Version None)
Quarter: 2007Q1

REPORT INFORMATION
  Report Type: 
  Country: None (occurrence: None)
  Receive Date: 20070117
  Receipt Date: 20070102
  Transmission Date: 20070707
  Serious: Yes (Hospitalization, Other)
  Sender: FDA-Public Use
  Company Number: 2007RR-05050

PATIENT
  Sex: Female

DRUGS (1)
  1. METFORMIN HCL [Suspect]
     Dosage: ORAL
     Route: 048

REACTIONS (3)
  - HAEMODIALYSIS [None]
  - LACTIC ACIDOSIS [None]
  - RENAL FAILURE ACUTE [None]
